FAERS Safety Report 6620908-6 (Version None)
Quarter: 2010Q1

REPORT INFORMATION
  Report Type: 
  Country: None (occurrence: None)
  Receive Date: 20100308
  Receipt Date: 20100308
  Transmission Date: 20100710
  Serious: No
  Sender: FDA-Public Use
  Company Number: None

PATIENT
  Age: 28 Year
  Sex: Male
  Weight: 81.6475 kg

DRUGS (2)
  1. CVS NASAL SPRAY ORIGINAL OXYMETAZOLINE HCL 0.05% CVS PHARMACY [Suspect]
     Indication: NASAL CONGESTION
     Dosage: 3 SPRAYS IN EACH NOSTRIL ONCE A DAY NASAL
     Route: 045
     Dates: start: 20100108, end: 20100111
  2. CVS NASAL SPRAY ORIGINAL OXYMETAZOLINE HCL 0.05% CVS PHARMACY [Suspect]
     Indication: NASOPHARYNGITIS
     Dosage: 3 SPRAYS IN EACH NOSTRIL ONCE A DAY NASAL
     Route: 045
     Dates: start: 20100108, end: 20100111

REACTIONS (2)
  - AGEUSIA [None]
  - ANOSMIA [None]
